FAERS Safety Report 8618451-8 (Version None)
Quarter: 2012Q3

REPORT INFORMATION
  Report Type: 
  Country: None (occurrence: None)
  Receive Date: 20120824
  Receipt Date: 20120820
  Transmission Date: 20120928
  Serious: Yes (Hospitalization)
  Sender: FDA-Public Use
  Company Number: US-AMGEN-USASP2012052879

PATIENT
  Age: 58 Year
  Sex: Male

DRUGS (1)
  1. ENBREL [Suspect]
     Indication: RHEUMATOID ARTHRITIS
     Dosage: 50 MG, QWK
     Route: 058

REACTIONS (9)
  - LYMPHADENOPATHY [None]
  - THROMBOSIS [None]
  - PAIN [None]
  - FATIGUE [None]
  - ALOPECIA [None]
  - COUGH [None]
  - ASTHMA [None]
  - JOINT DESTRUCTION [None]
  - BLOOD DISORDER [None]
